FAERS Safety Report 22038456 (Version 1)
Quarter: 2023Q1

REPORT INFORMATION
  Report Type: Spontaneous
  Country: US (occurrence: US)
  Receive Date: 20230227
  Receipt Date: 20230227
  Transmission Date: 20230417
  Serious: Yes (Hospitalization, Other)
  Sender: FDA-Public Use
  Company Number: US-MLMSERVICE-20230210-4098589-1

PATIENT
  Age: 29 Year
  Sex: Female

DRUGS (7)
  1. OXYCODONE [Suspect]
     Active Substance: OXYCODONE
     Indication: Suicide attempt
     Dosage: UNKNOWN QUANTITY OF OXYCODONE INGESTION/OVERDOSE
     Route: 048
  2. PERCOCET [Suspect]
     Active Substance: ACETAMINOPHEN\OXYCODONE HYDROCHLORIDE
     Indication: Product used for unknown indication
     Dosage: RECENT USE
     Route: 065
  3. ALPRAZOLAM [Concomitant]
     Active Substance: ALPRAZOLAM
     Indication: Suicide attempt
     Dosage: UNK
     Route: 065
  4. BUPROPION [Concomitant]
     Active Substance: BUPROPION
     Indication: Suicide attempt
     Dosage: UNK
     Route: 065
  5. PROPRANOLOL [Concomitant]
     Active Substance: PROPRANOLOL HYDROCHLORIDE
     Indication: Suicide attempt
     Dosage: UNK
     Route: 065
  6. XANAX [Concomitant]
     Active Substance: ALPRAZOLAM
     Indication: Suicide attempt
     Dosage: UNK
     Route: 065
  7. ZOLPIDEM [Concomitant]
     Active Substance: ZOLPIDEM TARTRATE
     Indication: Suicide attempt
     Dosage: UNK
     Route: 065

REACTIONS (6)
  - Electrocardiogram QT prolonged [Unknown]
  - Toxic leukoencephalopathy [Recovering/Resolving]
  - Cerebral infarction [Unknown]
  - Hemiplegia [Unknown]
  - Cerebellar infarction [Unknown]
  - Intentional overdose [Recovering/Resolving]
